FAERS Safety Report 4899030-5 (Version None)
Quarter: 2006Q1

REPORT INFORMATION
  Report Type: 
  Country: None (occurrence: None)
  Receive Date: 20060106
  Receipt Date: 20051014
  Transmission Date: 20060701
  Serious: No
  Sender: FDA-Public Use
  Company Number: 200512227BWH

PATIENT
  Age: 69 Year
  Sex: Male

DRUGS (4)
  1. LEVITRA [Suspect]
     Dosage: 20 MG, PRN, ORAL; 20/10 MG, BIW, ORAL
     Route: 048
  2. FLOMAX [Concomitant]
  3. LIPITOR [Concomitant]
  4. NEXIUM [Concomitant]

REACTIONS (2)
  - ERECTILE DYSFUNCTION [None]
  - FATIGUE [None]
